FAERS Safety Report 12273407 (Version 2)
Quarter: 2016Q2

REPORT INFORMATION
  Report Type: Spontaneous
  Country: GB (occurrence: GB)
  Receive Date: 20160415
  Receipt Date: 20160419
  Transmission Date: 20160815
  Serious: Yes (Life-Threatening, Hospitalization)
  Sender: FDA-Public Use
  Company Number: GB-ABBVIE-16P-167-1606590-00

PATIENT
  Age: 44 Year
  Sex: Male

DRUGS (7)
  1. EPILIM [Suspect]
     Active Substance: VALPROATE SODIUM
     Indication: HYPOMANIA
     Route: 048
     Dates: start: 20160217
  2. PHENERGAN [Interacting]
     Active Substance: PROMETHAZINE HYDROCHLORIDE
     Indication: AGITATION
     Route: 048
     Dates: start: 20160217
  3. CLONAZEPAM. [Interacting]
     Active Substance: CLONAZEPAM
     Indication: AGITATION
     Route: 048
     Dates: start: 20160217
  4. INNOHEP [Concomitant]
     Active Substance: TINZAPARIN SODIUM
     Indication: PRODUCT USED FOR UNKNOWN INDICATION
     Route: 065
  5. FLUCLOXACILLIN [Concomitant]
     Active Substance: FLUCLOXACILLIN
     Indication: PRODUCT USED FOR UNKNOWN INDICATION
     Route: 065
  6. OLANZAPINE. [Interacting]
     Active Substance: OLANZAPINE
     Indication: HYPOMANIA
     Route: 048
     Dates: start: 20160217
  7. ASPIRIN. [Concomitant]
     Active Substance: ASPIRIN
     Indication: PRODUCT USED FOR UNKNOWN INDICATION
     Route: 065

REACTIONS (12)
  - Drug interaction [Unknown]
  - Localised infection [Unknown]
  - Breathing-related sleep disorder [Unknown]
  - Drug hypersensitivity [Not Recovered/Not Resolved]
  - Rash maculo-papular [Unknown]
  - Reaction to drug excipients [Unknown]
  - Verbal abuse [Unknown]
  - Aggression [Not Recovered/Not Resolved]
  - Pruritus [Unknown]
  - Cerebrovascular accident [Unknown]
  - Oedema peripheral [Unknown]
  - Liver injury [Unknown]

NARRATIVE: CASE EVENT DATE: 20160217
